FAERS Safety Report 13775232 (Version 5)
Quarter: 2019Q1

REPORT INFORMATION
  Report Type: Spontaneous
  Country: JP (occurrence: JP)
  Receive Date: 20170720
  Receipt Date: 20190206
  Transmission Date: 20190417
  Serious: Yes (Hospitalization, Other)
  Sender: FDA-Public Use
  Company Number: JP-GILEAD-2017-0283331

PATIENT
  Age: 80 Year
  Sex: Male

DRUGS (4)
  1. RESTAMIN                           /00000401/ [Concomitant]
     Active Substance: DIPHENHYDRAMINE
  2. METHADERM [Concomitant]
  3. SOVALDI [Suspect]
     Active Substance: SOFOSBUVIR
     Indication: CHRONIC HEPATITIS C
     Dosage: 400 MG, QD, AFTER BREAKFAST
     Route: 065
     Dates: start: 20170322, end: 20170613
  4. REBETOL [Concomitant]
     Active Substance: RIBAVIRIN
     Dosage: 600MG/ DAY, BID, AFTER BREAKFAST AND DINNER
     Route: 048
     Dates: start: 20170322, end: 20170613

REACTIONS (6)
  - Bradycardia [Recovering/Resolving]
  - Cerebrovascular disorder [Unknown]
  - Haematuria [Unknown]
  - Syncope [Recovering/Resolving]
  - Skin exfoliation [Unknown]
  - Wolff-Parkinson-White syndrome [Unknown]

NARRATIVE: CASE EVENT DATE: 201707
